FAERS Safety Report 8262796 (Version 2)
Quarter: 2013Q1

REPORT INFORMATION
  Report Type: Spontaneous
  Country: US (occurrence: US)
  Receive Date: 20111124
  Receipt Date: 20130219
  Transmission Date: 20140127
  Serious: Yes (Hospitalization, Other)
  Sender: FDA-Public Use
  Company Number: US-ROCHE-1015974

PATIENT
  Age: 31 Year
  Sex: Male
  Weight: 72.64 kg

DRUGS (2)
  1. ACCUTANE [Suspect]
     Indication: ACNE
     Route: 065
     Dates: start: 19830801, end: 19831231
  2. ACCUTANE [Suspect]
     Route: 065

REACTIONS (9)
  - Anal abscess [Unknown]
  - Diverticulitis [Unknown]
  - Inflammatory bowel disease [Unknown]
  - Depression [Not Recovered/Not Resolved]
  - Injury [Unknown]
  - Intestinal obstruction [Unknown]
  - Dry skin [Unknown]
  - Alopecia [Unknown]
  - Irritable bowel syndrome [Unknown]
